APPROVED DRUG PRODUCT: CARGLUMIC ACID
Active Ingredient: CARGLUMIC ACID
Strength: 200MG
Dosage Form/Route: TABLET, FOR SUSPENSION;ORAL
Application: A213395 | Product #001 | TE Code: AB
Applicant: NAVINTA LLC
Approved: Jun 22, 2022 | RLD: No | RS: No | Type: RX